FAERS Safety Report 20479750 (Version 2)
Quarter: 2022Q1

REPORT INFORMATION
  Report Type: Spontaneous
  Country: CA (occurrence: CA)
  Receive Date: 20220216
  Receipt Date: 20220224
  Transmission Date: 20220423
  Serious: Yes (Other)
  Sender: FDA-Public Use
  Company Number: CA-PFIZER INC-2016264225

PATIENT
  Age: 66 Year
  Sex: Female

DRUGS (3)
  1. XELJANZ [Suspect]
     Active Substance: TOFACITINIB CITRATE
     Indication: Rheumatoid arthritis
     Dosage: 5 MG, 2X/DAY
     Route: 048
     Dates: start: 20151119, end: 20160425
  2. XELJANZ [Suspect]
     Active Substance: TOFACITINIB CITRATE
     Dosage: 5 MG, 2X/DAY
     Route: 048
  3. SULFASALAZINE [Suspect]
     Active Substance: SULFASALAZINE
     Indication: Rheumatoid arthritis
     Dosage: 1 DF
     Route: 065

REACTIONS (8)
  - Peripheral nerve operation [Unknown]
  - Wound haemorrhage [Not Recovered/Not Resolved]
  - Anaemia [Recovering/Resolving]
  - Abdominal pain [Unknown]
  - Constipation [Unknown]
  - Condition aggravated [Not Recovered/Not Resolved]
  - C-reactive protein increased [Recovered/Resolved]
  - Red blood cell sedimentation rate increased [Recovered/Resolved]

NARRATIVE: CASE EVENT DATE: 20160101
